FAERS Safety Report 6814684-1 (Version None)
Quarter: 2010Q3

REPORT INFORMATION
  Report Type: 
  Country: None (occurrence: None)
  Receive Date: 20100702
  Receipt Date: 20100630
  Transmission Date: 20110219
  Serious: Yes (Death)
  Sender: FDA-Public Use
  Company Number: US-ASTRAZENECA-2010SE30507

PATIENT
  Age: 33 Year
  Sex: Female

DRUGS (1)
  1. SEROQUEL XR [Suspect]
     Indication: BIPOLAR DISORDER
     Dosage: 150 TO 300 MG
     Route: 048
     Dates: end: 20100601

REACTIONS (3)
  - COMPLETED SUICIDE [None]
  - DRUG DOSE OMISSION [None]
  - MULTIPLE DRUG OVERDOSE [None]
